FAERS Safety Report 14379032 (Version 2)
Quarter: 2020Q4

REPORT INFORMATION
  Report Type: Spontaneous
  Country: US (occurrence: US)
  Receive Date: 20180112
  Receipt Date: 20201218
  Transmission Date: 20210113
  Serious: Yes (Disabling, Other)
  Sender: FDA-Public Use
  Company Number: US-TEVA-2018-US-844672

PATIENT
  Age: 55 Year
  Sex: Female

DRUGS (30)
  1. NEULASTA [Concomitant]
     Active Substance: PEGFILGRASTIM
  2. NEXIUM [Concomitant]
     Active Substance: ESOMEPRAZOLE MAGNESIUM
  3. ASPIRIN. [Concomitant]
     Active Substance: ASPIRIN
     Dosage: DOSAGE: 81MG DAILY
  4. ONDANSETRON HCL [Concomitant]
     Active Substance: ONDANSETRON HYDROCHLORIDE
  5. FISH OIL [Concomitant]
     Active Substance: FISH OIL
  6. ZOFRAN [Concomitant]
     Active Substance: ONDANSETRON HYDROCHLORIDE
  7. DULERA [Concomitant]
     Active Substance: FORMOTEROL FUMARATE DIHYDRATE\MOMETASONE FUROATE
  8. ATIVAN [Concomitant]
     Active Substance: LORAZEPAM
  9. FISH OIL [Concomitant]
     Active Substance: FISH OIL
  10. DOXORUBICIN [Suspect]
     Active Substance: DOXORUBICIN
     Indication: BREAST CANCER FEMALE
     Dosage: DOSAGE: UNKNOWN; NUMBER OF CYCLES: 06; EVERY THREE WEEKS
     Route: 065
     Dates: start: 20150312, end: 20150312
  11. DEXAMETHASONE SODIUM PHOSPHATE. [Concomitant]
     Active Substance: DEXAMETHASONE SODIUM PHOSPHATE
  12. DYMISTA [Concomitant]
     Active Substance: AZELASTINE HYDROCHLORIDE\FLUTICASONE PROPIONATE
  13. RAMIPRIL. [Concomitant]
     Active Substance: RAMIPRIL
     Dosage: DOSAGE: 10MG DAILY
     Dates: start: 2008
  14. CRESTOR [Concomitant]
     Active Substance: ROSUVASTATIN CALCIUM
     Dosage: DOSAGE: 10MG DAILY
     Dates: start: 2010
  15. VENTOLIN [Concomitant]
     Active Substance: ALBUTEROL SULFATE
  16. INDOMETHACIN. [Concomitant]
     Active Substance: INDOMETHACIN
  17. VITAMINS [Concomitant]
     Active Substance: VITAMINS
  18. PROMETHAZINE HCL [Concomitant]
     Active Substance: PROMETHAZINE HYDROCHLORIDE
  19. DULERA [Concomitant]
     Active Substance: FORMOTEROL FUMARATE DIHYDRATE\MOMETASONE FUROATE
  20. CYTOXAN [Suspect]
     Active Substance: CYCLOPHOSPHAMIDE
     Indication: BREAST CANCER FEMALE
     Dosage: DOSAGE: UNKNOWN; NUMBER OF CYCLES: 06; EVERY THREE WEEKS
     Dates: start: 20150312, end: 20150625
  21. HYDROCHLOROTHIAZIDE. [Concomitant]
     Active Substance: HYDROCHLOROTHIAZIDE
     Dosage: DOSAGE: 10MG DAILY
     Dates: start: 2010
  22. LOW DOSE ASPIRIN [Concomitant]
     Active Substance: ASPIRIN
     Dates: start: 2008
  23. MULTIVITAMINS [Concomitant]
     Active Substance: VITAMINS
     Dates: start: 2008
  24. PEGFILGRASTIM [Concomitant]
     Active Substance: PEGFILGRASTIM
  25. DOCETAXEL SAGENT [Suspect]
     Active Substance: DOCETAXEL
     Indication: BREAST CANCER FEMALE
     Dosage: DOSAGE: 150MG; NUMBER OF CYCLES: 06; EVERY THREE WEEKS
     Route: 065
     Dates: start: 20150312, end: 20150312
  26. AMLODIPINE BESYLATE. [Concomitant]
     Active Substance: AMLODIPINE BESYLATE
     Dosage: DOSAGE: 2.5MG DAILY
     Dates: start: 2008
  27. LEVOCETIRIZINE [Concomitant]
     Active Substance: LEVOCETIRIZINE
     Dates: start: 2016
  28. POTASSIUM CHLORIDE. [Concomitant]
     Active Substance: POTASSIUM CHLORIDE
     Dosage: DOSAGE: 10MEQ DAILY
  29. DULERA [Concomitant]
     Active Substance: FORMOTEROL FUMARATE DIHYDRATE\MOMETASONE FUROATE
     Dosage: 400 MILLIGRAM DAILY;
  30. GABAPENTIN. [Concomitant]
     Active Substance: GABAPENTIN

REACTIONS (11)
  - Diarrhoea [Unknown]
  - Oral pain [Unknown]
  - Arthralgia [Unknown]
  - Nausea [Unknown]
  - Hair colour changes [Not Recovered/Not Resolved]
  - Neuropathy peripheral [Unknown]
  - Vomiting [Unknown]
  - Loose tooth [Unknown]
  - Constipation [Unknown]
  - Alopecia areata [Not Recovered/Not Resolved]
  - Hair texture abnormal [Not Recovered/Not Resolved]

NARRATIVE: CASE EVENT DATE: 20151225
